FAERS Safety Report 9370413 (Version 1)
Quarter: 2013Q2

REPORT INFORMATION
  Report Type: Spontaneous
  Country: US (occurrence: US)
  Receive Date: 20130626
  Receipt Date: 20130626
  Transmission Date: 20140414
  Serious: Yes (Other)
  Sender: FDA-Public Use
  Company Number: US-GLAXOSMITHKLINE-A0837869A

PATIENT
  Age: 76 Year
  Sex: Female
  Weight: 61.4 kg

DRUGS (6)
  1. AVANDIA [Suspect]
     Indication: TYPE 2 DIABETES MELLITUS
     Dosage: 4MG UNKNOWN
     Route: 048
     Dates: start: 20080118
  2. LYRICA [Concomitant]
  3. METANX [Concomitant]
  4. COMBIGAN [Concomitant]
  5. PRED FORTE [Concomitant]
  6. VIGAMOX [Concomitant]

REACTIONS (2)
  - Cardiac failure [Not Recovered/Not Resolved]
  - Heart rate irregular [Unknown]
